FAERS Safety Report 19522030 (Version 1)
Quarter: 2021Q3

REPORT INFORMATION
  Report Type: Report from Study
  Country: ES (occurrence: ES)
  Receive Date: 20210712
  Receipt Date: 20210712
  Transmission Date: 20211014
  Serious: Yes (Other)
  Sender: FDA-Public Use
  Company Number: ES-MYLANLABS-2021M1040490

PATIENT
  Age: 4 Year
  Sex: Male

DRUGS (1)
  1. LEVETIRACETAM. [Suspect]
     Active Substance: LEVETIRACETAM
     Indication: EPILEPSY
     Dosage: UNK

REACTIONS (2)
  - Seizure [Unknown]
  - Off label use [Unknown]
